FAERS Safety Report 4461137-4 (Version None)
Quarter: 2004Q3

REPORT INFORMATION
  Report Type: 
  Country: None (occurrence: None)
  Receive Date: 20040923
  Receipt Date: 20040915
  Transmission Date: 20050211
  Serious: Yes (Hospitalization)
  Sender: FDA-Public Use
  Company Number: TAP2004Q01145

PATIENT
  Sex: Female

DRUGS (1)
  1. LUPRON DEPOT-3 [Suspect]
     Indication: ENDOMETRIOSIS
     Dates: start: 19980513, end: 19980708

REACTIONS (4)
  - INFERTILITY FEMALE [None]
  - MENSTRUATION IRREGULAR [None]
  - OSTEOPENIA [None]
  - PELVIC PAIN [None]
